FAERS Safety Report 8486174-4 (Version None)
Quarter: 2012Q3

REPORT INFORMATION
  Report Type: 
  Country: None (occurrence: None)
  Receive Date: 20120703
  Receipt Date: 20120626
  Transmission Date: 20120928
  Serious: Yes (Hospitalization, Other)
  Sender: FDA-Public Use
  Company Number: US-ELI_LILLY_AND_COMPANY-US201207000313

PATIENT
  Sex: Male

DRUGS (4)
  1. FORTEO [Suspect]
     Indication: OSTEOPOROSIS
     Dosage: UNK, QD
     Dates: start: 20110101
  2. SPIRIVA [Concomitant]
     Dosage: UNK
  3. PERCOCET [Concomitant]
     Indication: PAIN
     Dosage: UNK
  4. SYMBICORT [Concomitant]
     Dosage: UNK

REACTIONS (9)
  - MALIGNANT MELANOMA [None]
  - VOMITING [None]
  - ABDOMINAL DISCOMFORT [None]
  - ABDOMINAL PAIN [None]
  - INTESTINAL OBSTRUCTION [None]
  - MALAISE [None]
  - CONSTIPATION [None]
  - SCAR [None]
  - WEIGHT DECREASED [None]
